FAERS Safety Report 20323973 (Version 2)
Quarter: 2022Q1

REPORT INFORMATION
  Report Type: Report from Study
  Country: US (occurrence: US)
  Receive Date: 20220111
  Receipt Date: 20220119
  Transmission Date: 20220423
  Serious: Yes (Hospitalization, Other)
  Sender: FDA-Public Use
  Company Number: US-PFIZER INC-202101884068

PATIENT
  Age: 56 Year
  Sex: Male
  Weight: 79.9 kg

DRUGS (3)
  1. TALAZOPARIB [Suspect]
     Active Substance: TALAZOPARIB
     Indication: Adenocarcinoma pancreas
     Dosage: 250 UG, ON DAYS 1-3 WITH A 21 DAYS CYCLE
     Route: 048
     Dates: start: 20181002, end: 20181004
  2. CARBOPLATIN [Suspect]
     Active Substance: CARBOPLATIN
     Indication: Adenocarcinoma pancreas
     Dosage: AUC 6 IV OVER 30 MIN ON DAY 1 WITH A 21 DAYS CYCLE
     Route: 042
     Dates: start: 20181002, end: 20181002
  3. TAXOL [Suspect]
     Active Substance: PACLITAXEL
     Indication: Adenocarcinoma pancreas
     Dosage: 80 MG/M2, OVER 1 HR ON DAYS 1, 8 AND 15 WITH A 21 DAYS CYCLE
     Route: 042
     Dates: start: 20181002, end: 20181015

REACTIONS (4)
  - Fatigue [Unknown]
  - Decreased appetite [Recovered/Resolved]
  - Enterocolitis infectious [Unknown]
  - Pyrexia [Unknown]

NARRATIVE: CASE EVENT DATE: 20181005
